FAERS Safety Report 13954492 (Version 1)
Quarter: 2017Q3

REPORT INFORMATION
  Report Type: Spontaneous
  Country: AR (occurrence: AR)
  Receive Date: 20170911
  Receipt Date: 20170911
  Transmission Date: 20171128
  Serious: Yes (Congenital Anomaly)
  Sender: FDA-Public Use
  Company Number: AR-NOVOPROD-562242

PATIENT

DRUGS (1)
  1. TRESIBA [Suspect]
     Active Substance: INSULIN DEGLUDEC
     Indication: TYPE 2 DIABETES MELLITUS
     Dosage: 26 IU, QD (START DATE: 1 YEAR AND A HALF AGO APROX.)
     Route: 064
     Dates: end: 20170829

REACTIONS (2)
  - Foetal exposure during pregnancy [Recovered/Resolved]
  - Skeletal dysplasia [Unknown]
